FAERS Safety Report 7283999-8 (Version None)
Quarter: 2011Q1

REPORT INFORMATION
  Report Type: 
  Country: None (occurrence: None)
  Receive Date: 20110209
  Receipt Date: 20110131
  Transmission Date: 20110831
  Serious: Yes (Hospitalization)
  Sender: FDA-Public Use
  Company Number: JP-ASTRAZENECA-2011SE06191

PATIENT
  Sex: Male

DRUGS (5)
  1. CELLCEPT [Suspect]
     Indication: RENAL TRANSPLANT
     Route: 048
     Dates: start: 20080901
  2. AMLOR [Suspect]
     Indication: HYPERTENSION
     Route: 048
  3. CORTANCYL [Suspect]
     Indication: RENAL TRANSPLANT
     Route: 048
  4. PROGRAF [Suspect]
     Indication: RENAL TRANSPLANT
     Route: 048
     Dates: start: 20080901
  5. KENZEN [Suspect]
     Indication: HYPERTENSION
     Route: 048

REACTIONS (1)
  - CEREBROVASCULAR ACCIDENT [None]
